FAERS Safety Report 18915164 (Version 1)
Quarter: 2021Q1

REPORT INFORMATION
  Report Type: Spontaneous
  Country: US (occurrence: US)
  Receive Date: 20210219
  Receipt Date: 20210219
  Transmission Date: 20210420
  Serious: No
  Sender: FDA-Public Use
  Company Number: US-ALKEM LABORATORIES LIMITED-US-ALKEM-2020-00849

PATIENT
  Sex: Male

DRUGS (2)
  1. SILVER SULFADIAZINE. [Suspect]
     Active Substance: SILVER SULFADIAZINE
     Indication: INFLAMMATION
  2. SILVER SULFADIAZINE. [Suspect]
     Active Substance: SILVER SULFADIAZINE
     Indication: PERIPHERAL SWELLING
     Dosage: 2?3 TIMES IN DAY
     Route: 061
     Dates: start: 20200224

REACTIONS (1)
  - Drug effective for unapproved indication [Unknown]
